FAERS Safety Report 12759163 (Version 1)
Quarter: 2016Q3

REPORT INFORMATION
  Report Type: Spontaneous
  Country: US (occurrence: US)
  Receive Date: 20160915
  Receipt Date: 20160915
  Transmission Date: 20161109
  Serious: No
  Sender: FDA-Public Use
  Company Number: None

PATIENT
  Age: 55 Year
  Sex: Female

DRUGS (1)
  1. REMICADE [Suspect]
     Active Substance: INFLIXIMAB
     Dosage: 500MG Q8W IV
     Route: 042
     Dates: start: 20160126, end: 20160616

REACTIONS (3)
  - Antibody test positive [None]
  - Nausea [None]
  - Urticaria [None]

NARRATIVE: CASE EVENT DATE: 20160616
